FAERS Safety Report 21750174 (Version 1)
Quarter: 2022Q4

REPORT INFORMATION
  Report Type: Spontaneous
  Country: US (occurrence: US)
  Receive Date: 20221219
  Receipt Date: 20221219
  Transmission Date: 20230113
  Serious: No
  Sender: FDA-Public Use
  Company Number: US-PRIMUS-2022-US-014033

PATIENT
  Age: 75 Year
  Sex: Male

DRUGS (1)
  1. IMPOYZ [Suspect]
     Active Substance: CLOBETASOL PROPIONATE
     Indication: Pruritus
     Dosage: APPLY TOPICALLY TO ITCHY AREAS OF THE BODY TWICE DAILY
     Route: 061

REACTIONS (1)
  - Drug ineffective [Not Recovered/Not Resolved]
